FAERS Safety Report 7397491-3 (Version None)
Quarter: 2011Q2

REPORT INFORMATION
  Report Type: 
  Country: None (occurrence: None)
  Receive Date: 20110401
  Receipt Date: 20110401
  Transmission Date: 20111010
  Serious: No
  Sender: FDA-Public Use
  Company Number: None

PATIENT
  Age: 30 Year
  Sex: Male

DRUGS (2)
  1. SALINE [Suspect]
     Dosage: 5 ML FLUSH
  2. VENOFER [Suspect]
     Dosage: 200 MG / 10 ML
     Dates: start: 20110128

REACTIONS (1)
  - INFUSION SITE EXTRAVASATION [None]
